FAERS Safety Report 5909260-9 (Version None)
Quarter: 2008Q4

REPORT INFORMATION
  Report Type: 
  Country: None (occurrence: None)
  Receive Date: 20081006
  Receipt Date: 20081002
  Transmission Date: 20090506
  Serious: Yes (Life-Threatening)
  Sender: FDA-Public Use
  Company Number: PHHY2008GB23261

PATIENT
  Age: 79 Year
  Sex: Female

DRUGS (9)
  1. VALSARTAN [Suspect]
     Dosage: 160 MG, UNK
  2. TEVETEN [Suspect]
     Dosage: 1 DF, QD
     Route: 048
     Dates: start: 20080821, end: 20080826
  3. DIFFLAM [Concomitant]
  4. FERROUS SULFATE TAB [Concomitant]
  5. FUROSEMIDE [Concomitant]
     Dosage: 20 MG, UNK
  6. LACTULOSE [Concomitant]
  7. NAPROXEN [Concomitant]
     Dosage: 250 MG, UNK
  8. SOLPADEINE                              /IRE/ [Concomitant]
  9. BIPROLOL [Suspect]

REACTIONS (3)
  - DIARRHOEA [None]
  - LIP OEDEMA [None]
  - ORAL PAIN [None]
